FAERS Safety Report 9024942 (Version 1)
Quarter: 2013Q1

REPORT INFORMATION
  Report Type: Spontaneous
  Country: US (occurrence: None)
  Receive Date: 20121231
  Receipt Date: 20130219
  Transmission Date: 20140127
  Serious: Yes (Other)
  Sender: FDA-Public Use
  Company Number: ACO_33505_2012

PATIENT
  Age: 53 Year
  Sex: Male
  Weight: 77.1 kg

DRUGS (9)
  1. AMPYRA (DALFAMPRIDINE) TABLET, 10 MG [Suspect]
     Indication: MULTIPLE SCLEROSIS
     Route: 048
     Dates: start: 20120605
  2. BACLOFEN (BACLOFEN) (BACLOFEN) [Concomitant]
  3. LORATIDINE [Concomitant]
  4. TAMSULOSIN (TAMSULOSIN) [Concomitant]
  5. OMEPRAZOLE (OMEPRAZOLE) [Concomitant]
  6. ELAVIL (AMITRIPTYLINE HYDROCHLORIDE) [Concomitant]
  7. BETHANECHOL [Concomitant]
  8. GABAPENTIN (GABAPENTIN) [Concomitant]
  9. VALIUM (DIAZEPAM) [Concomitant]

REACTIONS (3)
  - Chest pain [None]
  - Blood pressure abnormal [None]
  - Vomiting [None]
